FAERS Safety Report 6669424-6 (Version None)
Quarter: 2010Q2

REPORT INFORMATION
  Report Type: 
  Country: None (occurrence: None)
  Receive Date: 20100406
  Receipt Date: 20100326
  Transmission Date: 20101027
  Serious: Yes (Other)
  Sender: FDA-Public Use
  Company Number: HQ7548222FEB2001

PATIENT
  Sex: Male
  Weight: 9 kg

DRUGS (3)
  1. BENEFIX [Suspect]
     Indication: FACTOR IX DEFICIENCY
     Dosage: ON DEMAND
     Route: 042
     Dates: start: 20001101, end: 20010101
  2. BENEFIX [Suspect]
     Dosage: 250 UNIT EVERY 1 DAY
     Route: 042
     Dates: start: 20010215
  3. ACETAMINOPHEN [Concomitant]
     Dosage: ON DEMAND
     Route: 054

REACTIONS (5)
  - DRUG SPECIFIC ANTIBODY PRESENT [None]
  - ERYTHEMA [None]
  - HYPERSENSITIVITY [None]
  - RESTLESSNESS [None]
  - URTICARIA [None]
